FAERS Safety Report 6312243-0 (Version None)
Quarter: 2009Q3

REPORT INFORMATION
  Report Type: 
  Country: None (occurrence: None)
  Receive Date: 20090817
  Receipt Date: 20090810
  Transmission Date: 20100115
  Serious: Yes (Other)
  Sender: FDA-Public Use
  Company Number: US-SANOFI-SYNTHELABO-A03200903519

PATIENT
  Sex: Female
  Weight: 68 kg

DRUGS (1)
  1. ARALEN [Suspect]
     Indication: ARTHRITIS
     Route: 048
     Dates: start: 19960101, end: 20070101

REACTIONS (1)
  - BLINDNESS [None]
